FAERS Safety Report 23960629 (Version 2)
Quarter: 2024Q2

REPORT INFORMATION
  Report Type: Spontaneous
  Country: IN (occurrence: IN)
  Receive Date: 20240611
  Receipt Date: 20240619
  Transmission Date: 20240715
  Serious: Yes (Life-Threatening, Hospitalization, Other)
  Sender: FDA-Public Use
  Company Number: IN-Accord-428553

PATIENT
  Age: 16 Year
  Sex: Male

DRUGS (9)
  1. METHOTREXATE [Suspect]
     Active Substance: METHOTREXATE
     Indication: B-cell type acute leukaemia
     Route: 037
  2. VINCRISTINE [Suspect]
     Active Substance: VINCRISTINE
     Indication: B-cell type acute leukaemia
     Dosage: FIRST PHASE OF INDUCTION
  3. PIRARUBICIN [Suspect]
     Active Substance: PIRARUBICIN
     Indication: B-cell type acute leukaemia
     Dosage: FIRST PHASE OF INDUCTION
  4. PREDNISONE [Suspect]
     Active Substance: PREDNISONE
     Indication: B-cell type acute leukaemia
     Dosage: FIRST PHASE OF INDUCTION
  5. PEGASPARGASE [Suspect]
     Active Substance: PEGASPARGASE
     Indication: B-cell type acute leukaemia
     Dosage: FIRST PHASE OF INDUCTION
  6. CYCLOPHOSPHAMIDE [Suspect]
     Active Substance: CYCLOPHOSPHAMIDE
     Indication: B-cell type acute leukaemia
     Dosage: SECOND PHASE OF INDUCTION
  7. CYTARABINE [Suspect]
     Active Substance: CYTARABINE
     Indication: B-cell type acute leukaemia
     Dosage: SECOND PHASE OF INDUCTION
  8. MERCAPTOPURINE [Suspect]
     Active Substance: MERCAPTOPURINE
     Indication: B-cell type acute leukaemia
     Dosage: SECOND PHASE OF INDUCTION
  9. DEXAMETHASONE [Suspect]
     Active Substance: DEXAMETHASONE
     Indication: B-cell type acute leukaemia

REACTIONS (3)
  - Mucormycosis [Recovered/Resolved]
  - Fungal rhinitis [Recovered/Resolved]
  - Orbital infection [Recovered/Resolved]
